FAERS Safety Report 19577681 (Version 3)
Quarter: 2022Q1

REPORT INFORMATION
  Report Type: Report from Study
  Country: CZ (occurrence: CZ)
  Receive Date: 20210719
  Receipt Date: 20220114
  Transmission Date: 20220424
  Serious: Yes (Hospitalization)
  Sender: FDA-Public Use
  Company Number: CZ-ASTRAZENECA-2021-18368

PATIENT
  Age: 65 Year
  Sex: Male

DRUGS (29)
  1. TRASTUZUMAB DERUXTECAN [Suspect]
     Active Substance: TRASTUZUMAB DERUXTECAN
     Indication: Pancreatic carcinoma
     Dosage: 5.4 MG/KG, ONCE EVERY 3 WK
     Route: 042
     Dates: start: 20210608, end: 20210608
  2. TRASTUZUMAB DERUXTECAN [Suspect]
     Active Substance: TRASTUZUMAB DERUXTECAN
     Dosage: 5.4 MG/KG, ONCE EVERY 3 WK
     Route: 042
     Dates: start: 20210629, end: 20210629
  3. FENTANYL [Concomitant]
     Active Substance: FENTANYL
     Indication: Pain in extremity
     Dosage: 75.0 UG/H  ONCE/SINGLE ADMINISTRATION
     Route: 042
     Dates: start: 20210615, end: 20210615
  4. FENTANYL [Concomitant]
     Active Substance: FENTANYL
     Indication: Prophylaxis
  5. METOCLOPRAMIDE HYDROCHLORIDE [Concomitant]
     Active Substance: METOCLOPRAMIDE HYDROCHLORIDE
     Indication: Iron overload
     Dosage: 10 MG
     Route: 042
     Dates: start: 20210614, end: 20210614
  6. METOCLOPRAMIDE HYDROCHLORIDE [Concomitant]
     Active Substance: METOCLOPRAMIDE HYDROCHLORIDE
     Indication: Vomiting
     Dosage: 10 MG
     Route: 042
     Dates: start: 20210615, end: 20210615
  7. DEXAMETHASONE [Concomitant]
     Active Substance: DEXAMETHASONE
     Indication: Iron overload
  8. DEXAMETHASONE [Concomitant]
     Active Substance: DEXAMETHASONE
     Indication: Vomiting
  9. DEXAMETHASONE [Concomitant]
     Active Substance: DEXAMETHASONE
     Indication: Vomiting
  10. ZOFRAN [Concomitant]
     Active Substance: ONDANSETRON HYDROCHLORIDE
     Indication: Iron overload
  11. ZOFRAN [Concomitant]
     Active Substance: ONDANSETRON HYDROCHLORIDE
     Indication: Vomiting
  12. ONDANSETRON [Concomitant]
     Active Substance: ONDANSETRON
     Indication: Vomiting
     Dosage: 8 MG
     Route: 042
     Dates: start: 20210608, end: 20210608
  13. PANCRELIPASE [Concomitant]
     Active Substance: PANCRELIPASE
     Indication: Pancreatic carcinoma
     Route: 048
     Dates: start: 201904
  14. NEURONTIN [Concomitant]
     Active Substance: GABAPENTIN
     Indication: Neuropathy peripheral
     Dosage: 300 MG
     Route: 048
     Dates: start: 202007
  15. ALLOPURINOL [Concomitant]
     Active Substance: ALLOPURINOL
  16. FILGRASTIM [Concomitant]
     Active Substance: FILGRASTIM
     Indication: Neutropenia
     Route: 058
     Dates: start: 20210622, end: 20210622
  17. FILGRASTIM [Concomitant]
     Active Substance: FILGRASTIM
     Route: 058
     Dates: start: 20210702, end: 20210703
  18. AKYNZEO [Concomitant]
     Active Substance: NETUPITANT\PALONOSETRON HYDROCHLORIDE
     Indication: Chemotherapy side effect prophylaxis
  19. DIAZEPAM [Concomitant]
     Active Substance: DIAZEPAM
     Indication: Vomiting
  20. METAMIZOLE [Concomitant]
     Active Substance: METAMIZOLE
     Indication: Pain
     Dosage: 500 MG
     Route: 042
     Dates: start: 20210612, end: 20210613
  21. METAMIZOLE [Concomitant]
     Active Substance: METAMIZOLE
     Dosage: 500 MG
     Route: 042
     Dates: start: 20210615, end: 20210615
  22. DUROGESIS [Concomitant]
     Indication: Prophylaxis
     Dosage: 75.0 UG/H  ONCE/SINGLE ADMINISTRATION
     Route: 042
     Dates: start: 20210612, end: 20210612
  23. FUROSEMIDE [Concomitant]
     Active Substance: FUROSEMIDE
     Indication: Prophylaxis
  24. ISOLYTE (NATRII ACETAS TRIHYDRICUS, NATRII CHLORIDUM, KALII CHLORIDUM, [Concomitant]
     Indication: Vomiting
  25. FENTANYL [Concomitant]
     Active Substance: FENTANYL
     Indication: Pain in extremity
     Dosage: 50 UG
     Route: 061
     Dates: start: 20210520, end: 20210607
  26. FENTANYL [Concomitant]
     Active Substance: FENTANYL
     Dosage: 75 UG
     Route: 061
     Dates: start: 20210608
  27. IBUPROFEN [Concomitant]
     Active Substance: IBUPROFEN
     Indication: Pain in extremity
     Dosage: 400 MG
     Route: 048
     Dates: start: 20210608
  28. OMEPRAZOLE [Concomitant]
     Active Substance: OMEPRAZOLE
     Indication: Gastrooesophageal reflux disease
     Dosage: 20 MG
     Route: 048
     Dates: start: 20210622
  29. NORMAL SALINE SOLUTION + MGSO4 20% [Concomitant]
     Indication: Renal failure
     Dosage: 1020 ML
     Route: 042
     Dates: start: 20210622, end: 20210622

REACTIONS (1)
  - General physical health deterioration [Recovered/Resolved]

NARRATIVE: CASE EVENT DATE: 20210704
